FAERS Safety Report 10697525 (Version 1)
Quarter: 2015Q1

REPORT INFORMATION
  Report Type: Spontaneous
  Country: US (occurrence: US)
  Receive Date: 20150108
  Receipt Date: 20150108
  Transmission Date: 20150721
  Serious: No
  Sender: FDA-Public Use
  Company Number: US-009507513-1501USA001987

PATIENT
  Sex: Female

DRUGS (1)
  1. ASMANEX [Suspect]
     Active Substance: MOMETASONE FUROATE
     Dosage: STRENGTH: 220; 1 INHALE PER DAY
     Route: 055
     Dates: start: 201410

REACTIONS (3)
  - Drug administration error [Unknown]
  - Product container issue [Unknown]
  - Ageusia [Unknown]
